FAERS Safety Report 12360257 (Version 1)
Quarter: 2016Q2

REPORT INFORMATION
  Report Type: Spontaneous
  Country: US (occurrence: US)
  Receive Date: 20160512
  Receipt Date: 20160512
  Transmission Date: 20160815
  Serious: No
  Sender: FDA-Public Use
  Company Number: US-PFIZER INC-2016226438

PATIENT
  Age: 22 Year
  Sex: Female
  Weight: 52 kg

DRUGS (1)
  1. ADVIL [Suspect]
     Active Substance: IBUPROFEN
     Indication: HEADACHE
     Dosage: ADVIL FILM COATED
     Dates: start: 20160417, end: 20160417

REACTIONS (2)
  - Nausea [Unknown]
  - Foreign body [Recovered/Resolved]

NARRATIVE: CASE EVENT DATE: 20160417
